FAERS Safety Report 5669131-2 (Version None)
Quarter: 2008Q1

REPORT INFORMATION
  Report Type: 
  Country: None (occurrence: None)
  Receive Date: 20080317
  Receipt Date: 20080312
  Transmission Date: 20080703
  Serious: Yes (Death, Life-Threatening, Hospitalization)
  Sender: FDA-Public Use
  Company Number: JP-AVENTIS-200711553JP

PATIENT
  Age: 71 Year
  Sex: Male
  Weight: 48.1 kg

DRUGS (7)
  1. TAXOTERE [Suspect]
     Route: 041
     Dates: start: 20060317, end: 20060425
  2. ESTRACYT                           /00327002/ [Concomitant]
     Route: 048
     Dates: start: 20060316, end: 20060509
  3. PREDNISOLONE [Concomitant]
     Route: 048
     Dates: start: 20060316, end: 20060509
  4. RESTAMIN [Concomitant]
     Indication: PREMEDICATION
     Dosage: DOSE: 5 TABLETS/DAY
     Dates: start: 20060317, end: 20060425
  5. DECADRON [Concomitant]
     Indication: PREMEDICATION
     Dates: start: 20060317, end: 20060425
  6. NORVASC                            /00972401/ [Concomitant]
     Indication: HYPERTENSION
     Dates: end: 20060509
  7. BEZATOL [Concomitant]
     Dates: end: 20060509

REACTIONS (5)
  - DYSPNOEA [None]
  - HEPATIC FAILURE [None]
  - INTERSTITIAL LUNG DISEASE [None]
  - PYREXIA [None]
  - RENAL FAILURE ACUTE [None]
